FAERS Safety Report 17610571 (Version 1)
Quarter: 2020Q2

REPORT INFORMATION
  Report Type: Spontaneous
  Country: MX (occurrence: MX)
  Receive Date: 20200401
  Receipt Date: 20200401
  Transmission Date: 20200713
  Serious: Yes (Hospitalization, Other)
  Sender: FDA-Public Use
  Company Number: MX-PFIZER INC-2020135679

PATIENT
  Age: 22 Year
  Sex: Male

DRUGS (1)
  1. TYGACIL [Suspect]
     Active Substance: TIGECYCLINE

REACTIONS (3)
  - Pancreatitis [Unknown]
  - Staphylococcal infection [Unknown]
  - Limb injury [Unknown]
